FAERS Safety Report 10045614 (Version 4)
Quarter: 2014Q2

REPORT INFORMATION
  Report Type: Spontaneous
  Country: JP (occurrence: JP)
  Receive Date: 20140328
  Receipt Date: 20140421
  Transmission Date: 20141212
  Serious: Yes (Hospitalization, Disabling)
  Sender: FDA-Public Use
  Company Number: JP-B.I. PHARMACEUTICALS,INC./RIDGEFIELD-2014-BI-13463NB

PATIENT
  Age: 71 Year
  Sex: Male
  Weight: 54.9 kg

DRUGS (4)
  1. PRAZAXA [Suspect]
     Indication: CEREBROVASCULAR ACCIDENT PROPHYLAXIS
     Dosage: 300 MG
     Route: 048
     Dates: start: 20131011, end: 20140313
  2. PRAZAXA [Suspect]
     Dosage: 220 MG
     Route: 048
     Dates: start: 20131011, end: 20140313
  3. GASLON N_OD / IRSOGLADINE MALEATE [Concomitant]
     Indication: PROPHYLAXIS
     Dosage: 4 MG
     Route: 065
     Dates: start: 20131011, end: 20140309
  4. TAKEPRON / LANSOPRAZOLE [Concomitant]
     Dosage: 15 MG
     Route: 065
     Dates: start: 20140310

REACTIONS (2)
  - Embolic stroke [Recovered/Resolved with Sequelae]
  - Drug ineffective [Unknown]
